FAERS Safety Report 14025999 (Version 1)
Quarter: 2017Q3

REPORT INFORMATION
  Report Type: Spontaneous
  Country: JP (occurrence: JP)
  Receive Date: 20170929
  Receipt Date: 20170929
  Transmission Date: 20171128
  Serious: Yes (Hospitalization)
  Sender: FDA-Public Use
  Company Number: JP-MITSUBISHI TANABE PHARMA CORPORATION-MTPC2017-0004275

PATIENT
  Age: 7 Decade
  Sex: Male

DRUGS (2)
  1. RADICUT [Suspect]
     Active Substance: EDARAVONE
     Route: 042
  2. METHYCOBAL [Concomitant]
     Active Substance: METHYLCOBALAMIN
     Route: 048

REACTIONS (1)
  - Hyponatraemia [Recovered/Resolved]

NARRATIVE: CASE EVENT DATE: 20170209
